FAERS Safety Report 5892668-8 (Version None)
Quarter: 2008Q3

REPORT INFORMATION
  Report Type: 
  Country: None (occurrence: None)
  Receive Date: 20080923
  Receipt Date: 20080916
  Transmission Date: 20090109
  Serious: Yes (Other)
  Sender: FDA-Public Use
  Company Number: PHEH2008US07565

PATIENT
  Sex: Male

DRUGS (1)
  1. EXJADE [Suspect]
     Dosage: 500 MG, QD
     Route: 048
     Dates: start: 20071120, end: 20080301

REACTIONS (5)
  - BLOOD IRON ABNORMAL [None]
  - MUSCLE ATROPHY [None]
  - SKIN ATROPHY [None]
  - STOMACH DISCOMFORT [None]
  - WEIGHT DECREASED [None]
